FAERS Safety Report 20635242 (Version 1)
Quarter: 2022Q1

REPORT INFORMATION
  Report Type: Spontaneous
  Country: NL (occurrence: NL)
  Receive Date: 20220325
  Receipt Date: 20220325
  Transmission Date: 20220423
  Serious: Yes (Hospitalization)
  Sender: FDA-Public Use
  Company Number: None

PATIENT
  Sex: Female
  Weight: 68 kg

DRUGS (3)
  1. ALENDRONIC ACID [Suspect]
     Active Substance: ALENDRONIC ACID
     Indication: Osteoporosis
     Dosage: 1 X PER WEEK 1 PIECE; 70 MG; ALENDRONIC ACID TABLET 70MG / BRAND NAME NOT SPECIFIED
     Dates: start: 2015, end: 20210201
  2. CHOLECALCIFEROL [Concomitant]
     Active Substance: CHOLECALCIFEROL
     Dosage: 25 MCG; COLECALCIFEROL / BRAND NAME NOT SPECIFIED; THERAPY START AND END DATE: ASKU
  3. CALCIUM CARBONATE [Concomitant]
     Active Substance: CALCIUM CARBONATE
     Dosage: 500 MG; THERAPY START AND END DATE: ASKU; CALCIUM CARBONATE CAPSULE 500MG (200MG CA) / BRAND NAME NO

REACTIONS (1)
  - Stress fracture [Unknown]
